FAERS Safety Report 8846857 (Version 1)
Quarter: 2012Q4

REPORT INFORMATION
  Report Type: Spontaneous
  Country: US (occurrence: None)
  Receive Date: 20121016
  Receipt Date: 20121016
  Transmission Date: 20130627
  Serious: Yes (Death, Hospitalization)
  Sender: FDA-Public Use
  Company Number: USA/USA/12/0026210

PATIENT
  Age: 16 Year
  Sex: Female

DRUGS (1)
  1. MINOCYCLINE HYDROCHLORIDE [Suspect]
     Indication: ACNE

REACTIONS (20)
  - Drug reaction with eosinophilia and systemic symptoms [None]
  - Cardiogenic shock [None]
  - Tachycardia [None]
  - Cardiac arrest [None]
  - Unresponsive to stimuli [None]
  - Cardiac failure acute [None]
  - Renal failure acute [None]
  - Multi-organ failure [None]
  - Peripheral ischaemia [None]
  - Cardiomyopathy [None]
  - Eosinophilic myocarditis [None]
  - Pancreatitis [None]
  - Respiratory failure [None]
  - Septic shock [None]
  - Colitis ischaemic [None]
  - Bacteraemia [None]
  - Fungaemia [None]
  - Pulmonary embolism [None]
  - Acute hepatic failure [None]
  - Intra-abdominal haemorrhage [None]
